FAERS Safety Report 8362722-X (Version None)
Quarter: 2012Q2

REPORT INFORMATION
  Report Type: 
  Country: None (occurrence: None)
  Receive Date: 20120514
  Receipt Date: 20120504
  Transmission Date: 20120825
  Serious: Yes (Other)
  Sender: FDA-Public Use
  Company Number: DSA_56446_2012

PATIENT
  Sex: Female

DRUGS (1)
  1. XENAZINE [Suspect]
     Indication: HUNTINGTON'S DISEASE
     Dosage: 6.25 MG TID ORAL
     Route: 048
     Dates: start: 20100417, end: 20120504

REACTIONS (3)
  - MUSCLE SPASMS [None]
  - CONDITION AGGRAVATED [None]
  - DYSKINESIA [None]
